FAERS Safety Report 17088245 (Version 4)
Quarter: 2020Q1

REPORT INFORMATION
  Report Type: Spontaneous
  Country: BR (occurrence: BR)
  Receive Date: 20191128
  Receipt Date: 20200117
  Transmission Date: 20200409
  Serious: Yes (Death, Hospitalization, Other)
  Sender: FDA-Public Use
  Company Number: BR-PFIZER INC-2019511811

PATIENT
  Age: 67 Year
  Sex: Male
  Weight: 110 kg

DRUGS (4)
  1. RANITIDINE. [Concomitant]
     Active Substance: RANITIDINE
     Indication: DYSPEPSIA
     Dosage: UNK
  2. LYRICA [Suspect]
     Active Substance: PREGABALIN
     Indication: CANCER PAIN
     Dosage: 150 MG, 2X/DAY
  3. LYRICA [Suspect]
     Active Substance: PREGABALIN
     Dosage: 850 MG, 2X/DAY
     Dates: start: 201904
  4. VONAU FLASH [Concomitant]
     Indication: NAUSEA
     Dosage: UNK
     Dates: start: 2018

REACTIONS (5)
  - Prostate cancer [Fatal]
  - Cardio-respiratory arrest [Fatal]
  - Hepatic failure [Fatal]
  - Off label use [Recovered/Resolved]
  - Product use in unapproved indication [Unknown]

NARRATIVE: CASE EVENT DATE: 201501
